FAERS Safety Report 6784836-8 (Version None)
Quarter: 2010Q2

REPORT INFORMATION
  Report Type: 
  Country: None (occurrence: None)
  Receive Date: 20100622
  Receipt Date: 20100610
  Transmission Date: 20101027
  Serious: Yes (Hospitalization)
  Sender: FDA-Public Use
  Company Number: CA-WYE-H03630008

PATIENT
  Sex: Male
  Weight: 72 kg

DRUGS (11)
  1. TACROLIMUS [Suspect]
     Indication: PROPHYLAXIS AGAINST TRANSPLANT REJECTION
     Dosage: DOSE AND FREQUENCY NOT SPECIFIED
     Route: 065
     Dates: end: 20080307
  2. PANTOPRAZOLE [Concomitant]
     Indication: DYSPEPSIA
     Route: 048
     Dates: start: 20060919, end: 20080408
  3. PANTOPRAZOLE [Concomitant]
     Route: 048
     Dates: start: 20080101
  4. ALDACTONE [Concomitant]
     Indication: FLUID RETENTION
     Route: 048
     Dates: start: 20080409
  5. VANCOMYCIN [Concomitant]
     Indication: CLOSTRIDIAL INFECTION
     Route: 048
     Dates: start: 20080312, end: 20080430
  6. PEGINTERFERON ALFA-2B [Suspect]
     Indication: HEPATITIS C
     Dosage: 180 MG / WEEK
     Route: 058
     Dates: start: 20080308, end: 20080101
  7. PEGINTERFERON ALFA-2B [Suspect]
     Dosage: 135 MG/WEEK
     Route: 058
     Dates: start: 20080407, end: 20081204
  8. RIBAVIRIN [Suspect]
     Indication: HEPATITIS C
     Dosage: 400 MG TWICE A DAY
     Route: 048
     Dates: start: 20080328, end: 20081204
  9. SIROLIMUS [Suspect]
     Indication: PROPHYLAXIS AGAINST TRANSPLANT REJECTION
     Dosage: 2-7 MG DAILY
     Route: 065
     Dates: start: 20080117, end: 20080703
  10. FUROSEMIDE [Concomitant]
     Indication: FLUID RETENTION
     Route: 048
     Dates: start: 20080317, end: 20080428
  11. FUROSEMIDE [Concomitant]
     Indication: ASCITES

REACTIONS (3)
  - ANAEMIA [None]
  - GASTROINTESTINAL HAEMORRHAGE [None]
  - THROMBOCYTOPENIA [None]
